FAERS Safety Report 5630103-5 (Version None)
Quarter: 2008Q1

REPORT INFORMATION
  Report Type: 
  Country: None (occurrence: None)
  Receive Date: 20080218
  Receipt Date: 20080213
  Transmission Date: 20080703
  Serious: Yes (Hospitalization, Other)
  Sender: FDA-Public Use
  Company Number: PHEH2008US01252

PATIENT
  Age: 82 Year
  Sex: Female
  Weight: 73.922 kg

DRUGS (3)
  1. EXELON [Suspect]
     Indication: DEMENTIA ALZHEIMER'S TYPE
     Dosage: 9.2 MG, QD
     Route: 062
     Dates: start: 20071212, end: 20071229
  2. ASPIRIN [Concomitant]
     Dosage: 81 MG, QD
     Route: 048
  3. METOPROLOL TARTRATE [Concomitant]
     Dosage: 25 MG, UNK

REACTIONS (3)
  - BLOOD PRESSURE INCREASED [None]
  - HEADACHE [None]
  - HYPERTENSIVE CRISIS [None]
